FAERS Safety Report 6314227-5 (Version None)
Quarter: 2009Q3

REPORT INFORMATION
  Report Type: 
  Country: None (occurrence: None)
  Receive Date: 20090817
  Receipt Date: 20090809
  Transmission Date: 20100115
  Serious: Yes (Other)
  Sender: FDA-Public Use
  Company Number: 2009SP018994

PATIENT
  Age: 57 Year
  Sex: Male

DRUGS (2)
  1. RIBAVIRIN [Suspect]
     Indication: HEPATITIS C
     Dosage: PO
     Route: 048
     Dates: start: 20080801, end: 20090301
  2. PEGASYS [Suspect]
     Indication: HEPATITIS C
     Dates: start: 20080801, end: 20090301

REACTIONS (3)
  - PNEUMONIA [None]
  - RED BLOOD CELL COUNT DECREASED [None]
  - WHITE BLOOD CELL COUNT DECREASED [None]
